FAERS Safety Report 8046466-X (Version None)
Quarter: 2012Q1

REPORT INFORMATION
  Report Type: 
  Country: None (occurrence: None)
  Receive Date: 20120113
  Receipt Date: 20120111
  Transmission Date: 20120608
  Serious: Yes (Death, Life-Threatening, Hospitalization, Other)
  Sender: FDA-Public Use
  Company Number: US-ABBOTT-01P-163-0113163-00

PATIENT
  Sex: Male
  Weight: 71.55 kg

DRUGS (18)
  1. ABACAVIR [Suspect]
     Indication: HIV INFECTION
     Dates: start: 20010129, end: 20010226
  2. LIPASE [Concomitant]
     Indication: PRODUCT USED FOR UNKNOWN INDICATION
  3. RO 29-9800 [Suspect]
     Indication: HIV INFECTION
     Route: 058
     Dates: start: 20010129, end: 20010226
  4. AMITRIPTYLINE HCL [Concomitant]
     Indication: PRODUCT USED FOR UNKNOWN INDICATION
  5. GABAPENTIN [Concomitant]
     Indication: PRODUCT USED FOR UNKNOWN INDICATION
  6. VITAMIN B12 AMINO [Concomitant]
     Indication: PRODUCT USED FOR UNKNOWN INDICATION
  7. PENTAMIDINE [Concomitant]
     Indication: PRODUCT USED FOR UNKNOWN INDICATION
     Route: 055
  8. LOPERAMIDE [Concomitant]
     Indication: PRODUCT USED FOR UNKNOWN INDICATION
  9. EFAVIRENZ [Suspect]
     Indication: HIV INFECTION
     Dates: start: 20010129, end: 20010226
  10. CLOTRIMAZOLE [Concomitant]
     Indication: PRODUCT USED FOR UNKNOWN INDICATION
     Route: 061
  11. TESTOSTERONE [Concomitant]
     Indication: PRODUCT USED FOR UNKNOWN INDICATION
     Route: 062
  12. FENTANYL [Concomitant]
     Indication: PAIN
     Route: 062
  13. ONDANSETRON [Concomitant]
     Indication: PRODUCT USED FOR UNKNOWN INDICATION
  14. ENFUVIRTIDE [Suspect]
     Indication: HIV INFECTION
  15. LOPINAVIR/RITONAVIR [Suspect]
     Indication: HIV INFECTION
     Dates: start: 20010129, end: 20010226
  16. AMPRENAVIR [Suspect]
     Indication: HIV INFECTION
     Dates: start: 20010129, end: 20010226
  17. LAMIVUDINE [Suspect]
     Indication: HIV INFECTION
     Dates: start: 20010129, end: 20010226
  18. IBUPROFEN [Concomitant]
     Indication: PRODUCT USED FOR UNKNOWN INDICATION

REACTIONS (11)
  - CONJUNCTIVITIS [None]
  - IMMUNE RECONSTITUTION SYNDROME [None]
  - GUILLAIN-BARRE SYNDROME [None]
  - LOBAR PNEUMONIA [None]
  - NEUROMYOPATHY [None]
  - ABDOMINAL PAIN [None]
  - PAIN [None]
  - PNEUMONIA [None]
  - BRADYCARDIA [None]
  - RESPIRATORY FAILURE [None]
  - HYPOXIA [None]
